FAERS Safety Report 5091277-0 (Version None)
Quarter: 2006Q3

REPORT INFORMATION
  Report Type: 
  Country: None (occurrence: None)
  Receive Date: 20060829
  Receipt Date: 20060822
  Transmission Date: 20061208
  Serious: Yes (Death)
  Sender: FDA-Public Use
  Company Number: PL-AVENTIS-200614432EU

PATIENT
  Age: 46 Year
  Sex: Male
  Weight: 150 kg

DRUGS (26)
  1. ENOXAPARIN SODIUM [Suspect]
     Indication: THROMBOSIS PROPHYLAXIS
     Route: 058
  2. ENOXAPARIN SODIUM [Suspect]
     Route: 058
  3. DOLCONTRAL [Concomitant]
     Indication: PROCEDURAL PAIN
     Dates: start: 20060810, end: 20060810
  4. MORPHINE SULFATE [Concomitant]
     Indication: PROCEDURAL PAIN
     Dates: start: 20060811, end: 20060811
  5. MORPHINE SULFATE [Concomitant]
     Dates: start: 20060813, end: 20060813
  6. MORPHINE SULFATE [Concomitant]
     Indication: CHEST PAIN
     Dates: start: 20060811, end: 20060811
  7. MORPHINE SULFATE [Concomitant]
     Dates: start: 20060813, end: 20060813
  8. ACETAMINOPHEN [Concomitant]
     Indication: PROCEDURAL PAIN
     Dates: start: 20060811, end: 20060811
  9. DOPAMINE [Concomitant]
     Indication: CARDIAC FAILURE
     Dates: start: 20060813, end: 20060813
  10. CORDARONE [Concomitant]
     Indication: CARDIAC FAILURE
     Dates: start: 20060813, end: 20060813
  11. METOCLOPRAMIDE [Concomitant]
     Indication: VOMITING
     Dates: start: 20060813, end: 20060813
  12. KETONAL [Concomitant]
     Indication: CHEST PAIN
     Dates: start: 20060813, end: 20060813
  13. ADRENALINE [Concomitant]
     Indication: CARDIAC FAILURE
     Dates: start: 20060813, end: 20060813
  14. ADRENALINE [Concomitant]
     Dates: start: 20060813, end: 20060813
  15. ADRENALINE [Concomitant]
     Dates: start: 20060813, end: 20060813
  16. ADRENALINE [Concomitant]
     Indication: RESUSCITATION
     Dates: start: 20060813, end: 20060813
  17. ADRENALINE [Concomitant]
     Dates: start: 20060813, end: 20060813
  18. ADRENALINE [Concomitant]
     Dates: start: 20060813, end: 20060813
  19. HYDROCORTISONE [Concomitant]
     Indication: RESPIRATORY FAILURE
     Dates: start: 20060813, end: 20060813
  20. AMBROXOL [Concomitant]
     Indication: RESPIRATORY FAILURE
     Dates: start: 20060813, end: 20060813
  21. CEFAZOLIN [Concomitant]
     Indication: ANTIBIOTIC PROPHYLAXIS
     Dates: start: 20060813, end: 20060813
  22. ATROPINE SULFATE [Concomitant]
     Indication: CARDIAC FAILURE
     Dates: start: 20060813, end: 20060813
  23. ORTANOL [Concomitant]
     Indication: PROPHYLAXIS
     Route: 048
     Dates: start: 20060813, end: 20060813
  24. ORTANOL [Concomitant]
     Indication: ULCER
     Route: 048
     Dates: start: 20060813, end: 20060813
  25. GELOFUSINE [Concomitant]
     Indication: HYPERTENSION
     Route: 042
     Dates: start: 20060810, end: 20060810
  26. EPHEDRINE HYDROCHLORIDE [Concomitant]
     Indication: HYPERTENSION
     Dates: start: 20060810, end: 20060810

REACTIONS (11)
  - ACTIVATED PARTIAL THROMBOPLASTIN TIME PROLONGED [None]
  - BLOOD PRESSURE DECREASED [None]
  - CARDIAC FAILURE [None]
  - DRUG INEFFECTIVE [None]
  - MYOCARDIAL INFARCTION [None]
  - PLATELET COUNT DECREASED [None]
  - PULMONARY EMBOLISM [None]
  - RED BLOOD CELL COUNT DECREASED [None]
  - RESPIRATORY FAILURE [None]
  - TACHYCARDIA [None]
  - VENTRICULAR EXTRASYSTOLES [None]
